FAERS Safety Report 6618744-X (Version None)
Quarter: 2010Q1

REPORT INFORMATION
  Report Type: 
  Country: None (occurrence: None)
  Receive Date: 20100305
  Receipt Date: 20100305
  Transmission Date: 20100710
  Serious: No
  Sender: FDA-Public Use
  Company Number: None

PATIENT
  Sex: Male
  Weight: 72.5755 kg

DRUGS (1)
  1. OXCARBAZEPINE [Suspect]
     Route: 048
     Dates: start: 20091222, end: 20100227

REACTIONS (1)
  - DEPRESSION [None]
